FAERS Safety Report 18589060 (Version 8)
Quarter: 2022Q2

REPORT INFORMATION
  Report Type: Report from Study
  Country: BR (occurrence: None)
  Receive Date: 20201208
  Receipt Date: 20220630
  Transmission Date: 20220721
  Serious: Yes (Life-Threatening, Hospitalization)
  Sender: FDA-Public Use
  Company Number: BR-ROCHE-2706539

PATIENT
  Age: 65 Year
  Sex: Male
  Weight: 56.6 kg

DRUGS (1)
  1. ATEZOLIZUMAB [Suspect]
     Active Substance: ATEZOLIZUMAB
     Indication: Transitional cell carcinoma
     Dosage: ON 08/OCT/2020, HE RECEIVED MOST RECENT DOSE OF ATEZOLIZUMAB (1200 MG).
     Route: 042
     Dates: start: 20171010

REACTIONS (1)
  - Miller Fisher syndrome [Not Recovered/Not Resolved]

NARRATIVE: CASE EVENT DATE: 20201027
